FAERS Safety Report 12111034 (Version 1)
Quarter: 2016Q1

REPORT INFORMATION
  Report Type: Spontaneous
  Country: US (occurrence: US)
  Receive Date: 20160224
  Receipt Date: 20160224
  Transmission Date: 20160526
  Serious: No
  Sender: FDA-Public Use
  Company Number: US-JAZZ-2015-US-006084

PATIENT
  Sex: Female

DRUGS (4)
  1. BUPIVACAINE HYDROCHLORIDE. [Suspect]
     Active Substance: BUPIVACAINE HYDROCHLORIDE
     Dosage: UNK MG, QH
     Route: 037
  2. PRIALT [Suspect]
     Active Substance: ZICONOTIDE ACETATE
     Dosage: 0.062 ?G, QH
     Route: 037
     Dates: start: 20150408, end: 20150423
  3. HYDROMORPHONE HCL [Suspect]
     Active Substance: HYDROMORPHONE HYDROCHLORIDE
     Dosage: UNK MG, QH
     Route: 037
  4. PRIALT [Suspect]
     Active Substance: ZICONOTIDE ACETATE
     Dosage: 0.124 ?G, QH
     Route: 037
     Dates: start: 20150423

REACTIONS (5)
  - Oral mucosal blistering [Unknown]
  - Lip blister [Unknown]
  - Mental impairment [Unknown]
  - Dry mouth [Unknown]
  - Speech disorder [Unknown]
